FAERS Safety Report 10885951 (Version 1)
Quarter: 2015Q1

REPORT INFORMATION
  Report Type: Spontaneous
  Country: US (occurrence: None)
  Receive Date: 20150302
  Receipt Date: 20150302
  Transmission Date: 20150721
  Serious: Yes (Other)
  Sender: FDA-Public Use
  Company Number: US-2015VAL000162

PATIENT
  Age: 7 Year
  Sex: Male
  Weight: 30.8 kg

DRUGS (2)
  1. CARBAMAZEPINE (CARBAMAZEPINE) UNKNOWN [Suspect]
     Active Substance: CARBAMAZEPINE
     Indication: SEIZURE
     Dosage: TITRATED TO 300 MG DAILY (30 MG/KG/D)
     Dates: start: 201112, end: 201202
  2. METHYLPHENIDATE [Suspect]
     Active Substance: METHYLPHENIDATE
     Indication: ATTENTION DEFICIT/HYPERACTIVITY DISORDER
     Dates: end: 201112

REACTIONS (3)
  - Seizure [None]
  - Mania [None]
  - Dizziness [None]
